FAERS Safety Report 23377246 (Version 8)
Quarter: 2024Q1

REPORT INFORMATION
  Report Type: Spontaneous
  Country: US (occurrence: US)
  Receive Date: 20240108
  Receipt Date: 20240329
  Transmission Date: 20240409
  Serious: Yes (Disabling)
  Sender: FDA-Public Use
  Company Number: US-JNJFOC-20240105097

PATIENT
  Age: 66 Year
  Sex: Male
  Weight: 108.8 kg

DRUGS (22)
  1. OPSUMIT [Suspect]
     Active Substance: MACITENTAN
     Indication: Pulmonary arterial hypertension
     Route: 048
     Dates: start: 202311, end: 202311
  2. TREPROSTINIL SODIUM [Suspect]
     Active Substance: TREPROSTINIL SODIUM
     Indication: Pulmonary arterial hypertension
     Route: 055
     Dates: start: 202311, end: 202311
  3. TREPROSTINIL SODIUM [Suspect]
     Active Substance: TREPROSTINIL SODIUM
     Route: 055
     Dates: start: 202311, end: 202311
  4. TREPROSTINIL SODIUM [Suspect]
     Active Substance: TREPROSTINIL SODIUM
     Route: 055
     Dates: start: 2023, end: 2023
  5. TREPROSTINIL SODIUM [Suspect]
     Active Substance: TREPROSTINIL SODIUM
     Route: 055
     Dates: start: 2023
  6. TREPROSTINIL SODIUM [Suspect]
     Active Substance: TREPROSTINIL SODIUM
     Route: 055
  7. TREPROSTINIL SODIUM [Suspect]
     Active Substance: TREPROSTINIL SODIUM
     Route: 055
     Dates: start: 20231127
  8. TREPROSTINIL SODIUM [Suspect]
     Active Substance: TREPROSTINIL SODIUM
     Route: 055
  9. TREPROSTINIL SODIUM [Suspect]
     Active Substance: TREPROSTINIL SODIUM
     Route: 055
  10. TREPROSTINIL SODIUM [Suspect]
     Active Substance: TREPROSTINIL SODIUM
     Dosage: 24 G- 30 G
     Route: 055
  11. TREPROSTINIL SODIUM [Suspect]
     Active Substance: TREPROSTINIL SODIUM
     Dosage: 40 MG, QD
     Route: 055
  12. LASIX [Suspect]
     Active Substance: FUROSEMIDE
     Indication: Product used for unknown indication
     Route: 065
     Dates: end: 202311
  13. LASIX [Suspect]
     Active Substance: FUROSEMIDE
     Route: 065
     Dates: start: 202311, end: 202311
  14. ESBRIET [Suspect]
     Active Substance: PIRFENIDONE
     Indication: Pulmonary fibrosis
     Route: 048
     Dates: start: 202307
  15. BREZTRI [Concomitant]
     Active Substance: BUDESONIDE\FORMOTEROL\GLYCOPYRROLATE
  16. ESBRIET [Concomitant]
     Active Substance: PIRFENIDONE
  17. CINNAMON [CINNAMOMUM VERUM] [Concomitant]
  18. ASPIRIN [Concomitant]
     Active Substance: ASPIRIN
  19. CAYENNE [CAPSICUM SPP.] [Concomitant]
  20. OXYGEN [Concomitant]
     Active Substance: OXYGEN
  21. GLIMEPIRIDE [Concomitant]
     Active Substance: GLIMEPIRIDE
  22. CELLCEPT [Concomitant]
     Active Substance: MYCOPHENOLATE MOFETIL

REACTIONS (17)
  - Hypoxia [Recovered/Resolved]
  - Drug intolerance [Unknown]
  - Cough [Recovered/Resolved]
  - Dizziness postural [Recovered/Resolved]
  - Orthostatic hypotension [Recovered/Resolved]
  - Dyspnoea exertional [Recovering/Resolving]
  - Fatigue [Unknown]
  - Productive cough [Recovering/Resolving]
  - Respiratory tract congestion [Recovering/Resolving]
  - Decreased appetite [Not Recovered/Not Resolved]
  - Weight decreased [Not Recovered/Not Resolved]
  - Peripheral swelling [Recovered/Resolved]
  - Oxygen saturation decreased [Not Recovered/Not Resolved]
  - Joint swelling [Recovering/Resolving]
  - Asthenia [Unknown]
  - Constipation [Unknown]
  - Pharyngitis [Unknown]

NARRATIVE: CASE EVENT DATE: 20231101
